FAERS Safety Report 5478409-7 (Version None)
Quarter: 2007Q4

REPORT INFORMATION
  Report Type: 
  Country: None (occurrence: None)
  Receive Date: 20071005
  Receipt Date: 20070924
  Transmission Date: 20080405
  Serious: Yes (Hospitalization, Other)
  Sender: FDA-Public Use
  Company Number: GB-KINGPHARMUSA00001-K200701250

PATIENT

DRUGS (11)
  1. PITOCIN [Suspect]
     Dosage: 5 IU, SINGLE
     Route: 042
  2. BOSENTAN [Concomitant]
     Indication: PULMONARY HYPERTENSION
     Dosage: 250 MG, QD
  3. SILDENAFIL [Concomitant]
     Indication: PULMONARY HYPERTENSION
     Dosage: 75 MG, QD
  4. PROSTACYCLIN [Concomitant]
     Dosage: 0.5 NG KG-1 MIN-1
     Route: 042
  5. PROSTACYCLIN [Concomitant]
     Dosage: 8 NG KG-1 MIN-1
     Route: 042
  6. DIAMORPHINE [Concomitant]
     Dosage: 400 MCG
     Route: 037
  7. LEVOBUPIVACAINE [Concomitant]
     Dosage: UNK, BOLUS
     Route: 008
  8. PHENYLEPHRINE [Concomitant]
     Dosage: UNK, BOLUS
     Route: 040
  9. NITROUS OXIDE [Concomitant]
     Dosage: 12 PPM
  10. VASOPRESSIN [Concomitant]
     Dosage: .08 U MIN-1, UNK
  11. CORTICOSTEROIDS FOR SYSTEMIC USE [Concomitant]
     Indication: MATERNAL THERAPY TO ENHANCE FOETAL LUNG MATURITY
     Route: 030

REACTIONS (2)
  - LABILE BLOOD PRESSURE [None]
  - RIGHT ATRIAL PRESSURE INCREASED [None]
